FAERS Safety Report 6261708-9 (Version None)
Quarter: 2009Q3

REPORT INFORMATION
  Report Type: 
  Country: None (occurrence: None)
  Receive Date: 20090707
  Receipt Date: 20090707
  Transmission Date: 20100115
  Serious: Yes (Life-Threatening, Hospitalization)
  Sender: FDA-Public Use
  Company Number: None

PATIENT
  Age: 65 Year
  Sex: Female
  Weight: 125 kg

DRUGS (3)
  1. CARBOPLATIN [Suspect]
  2. DOXIL [Suspect]
  3. TAXOL [Suspect]

REACTIONS (5)
  - ACUTE MYELOID LEUKAEMIA [None]
  - BLOOD COUNT ABNORMAL [None]
  - DRUG INEFFECTIVE [None]
  - NEUTROPHIL COUNT DECREASED [None]
  - OVARIAN CANCER RECURRENT [None]
